FAERS Safety Report 8324969-8 (Version None)
Quarter: 2012Q2

REPORT INFORMATION
  Report Type: 
  Country: None (occurrence: None)
  Receive Date: 20120501
  Receipt Date: 20100405
  Transmission Date: 20120825
  Serious: No
  Sender: FDA-Public Use
  Company Number: US-TEVA-2010000986

PATIENT
  Age: 45 Year
  Sex: Female

DRUGS (1)
  1. NUVIGIL [Suspect]
     Dosage: 250 MILLIGRAM;
     Route: 048
     Dates: start: 20100201, end: 20100301

REACTIONS (3)
  - SWOLLEN TONGUE [None]
  - POLLAKIURIA [None]
  - HYPERSENSITIVITY [None]
